FAERS Safety Report 23590120 (Version 3)
Quarter: 2024Q3

REPORT INFORMATION
  Report Type: Spontaneous
  Country: US (occurrence: US)
  Receive Date: 20240304
  Receipt Date: 20240731
  Transmission Date: 20241016
  Serious: Yes (Other)
  Sender: CIPLA
  Company Number: US-CIPLA LTD.-2024US02241

PATIENT

DRUGS (6)
  1. SAJAZIR [Suspect]
     Active Substance: ICATIBANT ACETATE
     Indication: Interstitial lung disease
     Dosage: 30 MILLIGRAM, PRN (3^S- 30 MG PFS 3 ML- 3/PK)
     Route: 058
     Dates: start: 20230613
  2. SAJAZIR [Suspect]
     Active Substance: ICATIBANT ACETATE
     Indication: Acquired complement deficiency disease
     Dosage: 30 MILLIGRAM, PRN (3^S- 30 MG PFS 3 ML- 3/PK)
     Route: 058
     Dates: start: 20230613
  3. METOPROLOL SUCCINATE [Concomitant]
     Active Substance: METOPROLOL SUCCINATE
     Indication: Product used for unknown indication
     Dosage: UNK
     Route: 065
  4. TAKHZYRO [Concomitant]
     Active Substance: LANADELUMAB-FLYO
     Indication: Product used for unknown indication
     Dosage: UNK
     Route: 065
  5. PROMETHAZINE [Concomitant]
     Active Substance: PROMETHAZINE HYDROCHLORIDE
     Indication: Product used for unknown indication
     Dosage: UNK
     Route: 065
  6. RUCONEST [Concomitant]
     Active Substance: CONESTAT ALFA
     Indication: Product used for unknown indication
     Dosage: UNK
     Route: 065

REACTIONS (3)
  - Cardiac valve disease [Unknown]
  - Hereditary angioedema [Unknown]
  - Off label use [Unknown]
